FAERS Safety Report 14392129 (Version 2)
Quarter: 2018Q1

REPORT INFORMATION
  Report Type: Report from Study
  Country: AU (occurrence: AU)
  Receive Date: 20180116
  Receipt Date: 20180213
  Transmission Date: 20180509
  Serious: Yes (Hospitalization)
  Sender: FDA-Public Use
  Company Number: AU-VERTEX PHARMACEUTICALS-2018-000160

PATIENT
  Age: 14 Year
  Sex: Male
  Weight: 54 kg

DRUGS (12)
  1. FLIXOTIDE [Concomitant]
     Active Substance: FLUTICASONE PROPIONATE
     Indication: ASTHMA
     Dosage: 125 MICROGRAM, BID
     Route: 055
     Dates: start: 20040915
  2. HYPERTONIC SALINE SOLUTION [Concomitant]
     Active Substance: SODIUM CHLORIDE
     Dosage: 4 MILLILITER, QD
     Route: 055
     Dates: start: 20081001
  3. SALBUTAMOL [Concomitant]
     Active Substance: ALBUTEROL
     Indication: ASTHMA
     Dosage: 200-400MCG, PRN
     Route: 055
     Dates: start: 20070417
  4. TILADE [Concomitant]
     Active Substance: NEDOCROMIL SODIUM
     Indication: ASTHMA
     Dosage: 2 PUFFS, BID
     Route: 055
     Dates: start: 20150211
  5. VX-661/VX-770 [Suspect]
     Active Substance: INVESTIGATIONAL PRODUCT
     Indication: CYSTIC FIBROSIS
     Dosage: UNK
     Route: 048
     Dates: start: 20161215
  6. OSTELIN                            /00107901/ [Concomitant]
     Active Substance: ERGOCALCIFEROL
     Dosage: 2 DOSAGE FORM, QD
     Route: 048
     Dates: start: 20141104
  7. OMEPRAZOLE. [Concomitant]
     Active Substance: OMEPRAZOLE
     Indication: GASTROOESOPHAGEAL REFLUX DISEASE
     Dosage: 20 MG, BID
     Route: 048
     Dates: start: 20031203
  8. SALT [Concomitant]
     Active Substance: SODIUM CHLORIDE
     Dosage: 1 DOSAGE FORM, BID
     Route: 048
     Dates: start: 200308
  9. FLUCLOXACILLIN [Concomitant]
     Active Substance: FLUCLOXACILLIN
     Indication: ANTIBIOTIC PROPHYLAXIS
     Dosage: 250 MG, BID
     Route: 048
     Dates: start: 20031105
  10. OSMOLAX                            /00163401/ [Concomitant]
     Indication: CONSTIPATION
     Dosage: 1 SCOOP/ 1-2 PER WEEK
     Route: 048
     Dates: start: 20150429
  11. CREON [Concomitant]
     Active Substance: PANCRELIPASE AMYLASE\PANCRELIPASE LIPASE\PANCRELIPASE PROTEASE
     Indication: PANCREATIC FAILURE
     Dosage: 10000 UT, PRN
     Route: 048
     Dates: start: 200308
  12. AZITHROMYCIN ANHYDROUS. [Concomitant]
     Active Substance: AZITHROMYCIN ANHYDROUS
     Dosage: 250 MG, THREE PER WEEK
     Route: 048
     Dates: start: 20080924

REACTIONS (1)
  - Testicular torsion [Recovered/Resolved]

NARRATIVE: CASE EVENT DATE: 20171216
